FAERS Safety Report 21791959 (Version 1)
Quarter: 2022Q4

REPORT INFORMATION
  Report Type: Report from Study
  Country: US (occurrence: US)
  Receive Date: 20221229
  Receipt Date: 20221229
  Transmission Date: 20230113
  Serious: No
  Sender: FDA-Public Use
  Company Number: US-ABBVIE-4216073

PATIENT
  Sex: Male

DRUGS (23)
  1. DUOPA [Suspect]
     Active Substance: CARBIDOPA\LEVODOPA
     Indication: Product used for unknown indication
     Route: 050
     Dates: start: 20220104
  2. DUOPA [Suspect]
     Active Substance: CARBIDOPA\LEVODOPA
  3. MIRTAZAPINE [Concomitant]
     Active Substance: MIRTAZAPINE
     Indication: Product used for unknown indication
     Dosage: HS?1 TABLET CONTAINS 15 MG
     Route: 048
  4. NUPLAZID [Concomitant]
     Active Substance: PIMAVANSERIN TARTRATE
     Indication: Product used for unknown indication
     Dosage: HS?1 TABLET CONTAINS 34 MG
     Route: 048
  5. CLONAZEPAM [Concomitant]
     Active Substance: CLONAZEPAM
     Indication: Product used for unknown indication
     Dosage: HS?1 TABLET CONTAINS 1 MG
     Route: 048
  6. EYLEA 2MG/0.05ML VIAL [Concomitant]
     Indication: Product used for unknown indication
     Dosage: EVERY FOUR TO SIX WEEKS
     Route: 042
  7. CLONIDINE [Concomitant]
     Active Substance: CLONIDINE
     Indication: Product used for unknown indication
     Dosage: DAILY?1 TABLET CONTAINS 0.1 MG
     Route: 048
  8. ONDANSETRON [Concomitant]
     Active Substance: ONDANSETRON
     Indication: Product used for unknown indication
     Dosage: EVERY EIGHT HOURS?1 TABLET CONTAINS 8 MG
     Route: 048
  9. MYRBETRIQ [Concomitant]
     Active Substance: MIRABEGRON
     Indication: Product used for unknown indication
     Dosage: DAILY?1 TABLET CONTAINS 50 MG
     Route: 048
  10. LISINOPRIL [Concomitant]
     Active Substance: LISINOPRIL
     Indication: Product used for unknown indication
     Dosage: DAILY?1 TABLET CONTAINS 40 MG
     Route: 048
  11. DONEPEZIL [Concomitant]
     Active Substance: DONEPEZIL
     Indication: Product used for unknown indication
     Dosage: DAILY?1 TABLET CONTAINS 10 MG
     Route: 048
  12. CITRACAL + D MAXIMUM [Concomitant]
     Indication: Product used for unknown indication
     Dosage: DAILY?1 TABLET
     Route: 048
  13. VITAMIN D3 50MCG [Concomitant]
     Indication: Product used for unknown indication
     Dosage: DAILY?1 CAPSULE CONTAINS 50 MCG
     Route: 048
  14. CARBIDOPA-LEVODOPA ER 195 Mg [Concomitant]
     Indication: Product used for unknown indication
     Dosage: TWICE A DAY
     Route: 048
  15. CARBIDOPA-LEVODOPA ER 195 Mg [Concomitant]
     Indication: Product used for unknown indication
     Dosage: THREE TIMES A DAY
     Route: 048
  16. LINZESS [Concomitant]
     Active Substance: LINACLOTIDE
     Indication: Product used for unknown indication
     Dosage: AS NEEDED?1 CAPSULE CONTAINS 145 MCG
     Route: 048
  17. NITROGLYCERIN 0.4MG [Concomitant]
     Indication: Product used for unknown indication
     Dosage: AS NEEDED?1 TABLET CONTAINS 0.4 MG
     Route: 060
  18. FINASTERIDE [Concomitant]
     Active Substance: FINASTERIDE
     Indication: Product used for unknown indication
     Dosage: HS?1 TABLET CONTAINS 5 MG
     Route: 048
  19. PANTOPRAZOLE SODIUM [Concomitant]
     Active Substance: PANTOPRAZOLE SODIUM
     Indication: Product used for unknown indication
     Dosage: TWICE A DAY?1 TABLET CONTAINS 40 MG
     Route: 048
  20. CLONAZEPAM [Concomitant]
     Active Substance: CLONAZEPAM
     Indication: Product used for unknown indication
     Dosage: QPM?1 TABLET CONTAINS 0.5 MG
     Route: 048
  21. MELATONIN [Concomitant]
     Active Substance: MELATONIN
     Indication: Product used for unknown indication
     Dosage: HS CHEWABLE?1 TABLET CONTAINS 5 MG
  22. ROSUVASTATIN [Concomitant]
     Active Substance: ROSUVASTATIN
     Indication: Product used for unknown indication
     Dosage: DAILY?1 TABLET CONTAINS 20 MG
     Route: 048
  23. AMLODIPINE [Concomitant]
     Active Substance: AMLODIPINE BESYLATE
     Indication: Product used for unknown indication
     Dosage: DAILY?1 TABLET CONTAINS 10 MG
     Route: 048

REACTIONS (4)
  - Dental caries [Unknown]
  - Dyskinesia [Unknown]
  - Dry mouth [Unknown]
  - Hallucination [Unknown]
